FAERS Safety Report 5259654-2 (Version None)
Quarter: 2007Q1

REPORT INFORMATION
  Report Type: 
  Country: None (occurrence: None)
  Receive Date: 20070307
  Receipt Date: 20070307
  Transmission Date: 20070707
  Serious: Yes (Life-Threatening, Hospitalization, Other)
  Sender: FDA-Public Use
  Company Number: None

PATIENT
  Age: 69 Year
  Sex: Male
  Weight: 85.3 kg

DRUGS (17)
  1. CEFAZOLIN [Suspect]
     Indication: PROPHYLAXIS
     Dosage: 2GM  EVERY 8 HOURS  IV BOLUS
     Route: 040
     Dates: start: 20060818, end: 20060819
  2. CEFAZOLIN [Suspect]
     Indication: SURGERY
     Dosage: 2GM  EVERY 8 HOURS  IV BOLUS
     Route: 040
     Dates: start: 20060818, end: 20060819
  3. ASTELIN [Concomitant]
  4. ALBUTEROL [Concomitant]
  5. PLAVIX [Concomitant]
  6. VITAMIN E [Concomitant]
  7. B-100 [Concomitant]
  8. CALCIUM [Concomitant]
  9. ASCORBIC ACID [Concomitant]
  10. GLUCOSAMINE/CHONDROTIN [Concomitant]
  11. ATENOLOL [Concomitant]
  12. SYNTHROID [Concomitant]
  13. LOVASTATIN [Concomitant]
  14. POTASSIUM CHLORIDE [Concomitant]
  15. SELENIUM SULFIDE [Concomitant]
  16. ZINC [Concomitant]
  17. LEVAQUIN [Concomitant]

REACTIONS (2)
  - LOCAL SWELLING [None]
  - SIMILAR REACTION ON PREVIOUS EXPOSURE TO DRUG [None]
